FAERS Safety Report 4731359-3 (Version None)
Quarter: 2005Q3

REPORT INFORMATION
  Report Type: 
  Country: None (occurrence: None)
  Receive Date: 20050719
  Receipt Date: 20050224
  Transmission Date: 20060218
  Serious: Yes (Hospitalization)
  Sender: FDA-Public Use
  Company Number: 2005BI004441

PATIENT
  Age: 59 Year
  Sex: Male
  Weight: 68.0396 kg

DRUGS (12)
  1. AVONEX [Suspect]
     Indication: MULTIPLE SCLEROSIS
     Dosage: 30 UG; QW; IM
     Route: 030
     Dates: start: 20010101, end: 20030101
  2. AVONEX [Suspect]
     Indication: MULTIPLE SCLEROSIS
     Dosage: 30 UG; QW; IM
     Route: 030
     Dates: start: 20030101
  3. LIPITOR [Concomitant]
  4. VALIUM [Concomitant]
  5. COLACE [Concomitant]
  6. OMEPRAZOLE [Concomitant]
  7. ZIZAINIDINE [Concomitant]
  8. ALTACE [Concomitant]
  9. COREG [Concomitant]
  10. CALCIUM GLUCONATE [Concomitant]
  11. ASPRIN [Concomitant]
  12. ASCORBIC ACID [Concomitant]

REACTIONS (4)
  - DEPRESSION [None]
  - FATIGUE [None]
  - MOBILITY DECREASED [None]
  - URINARY TRACT INFECTION [None]
